FAERS Safety Report 9774622 (Version 1)
Quarter: 2013Q4

REPORT INFORMATION
  Report Type: Spontaneous
  Country: US (occurrence: None)
  Receive Date: 20131219
  Receipt Date: 20131219
  Transmission Date: 20140711
  Serious: Yes (Hospitalization)
  Sender: FDA-Public Use
  Company Number: None

PATIENT
  Age: 84 Year
  Sex: Female
  Weight: 54.43 kg

DRUGS (23)
  1. RANEXA [Suspect]
     Indication: CORONARY ARTERY DISEASE
     Route: 048
     Dates: start: 20131003
  2. RANEXA [Suspect]
     Indication: CHEST PAIN
     Route: 048
     Dates: start: 20131003
  3. COREQ [Concomitant]
  4. PRILOSEC [Concomitant]
  5. L-METHYLTOLATE [Concomitant]
  6. PRADRUCA [Concomitant]
  7. MVI [Concomitant]
  8. AMIODARATE [Concomitant]
  9. NO/CO [Concomitant]
  10. MS CONTIN [Concomitant]
  11. GABAPENTIN [Concomitant]
  12. LEVOTHYROXINE [Concomitant]
  13. REMERON [Concomitant]
  14. CYMBALTA [Concomitant]
  15. SPIRIVA [Concomitant]
  16. FLONASE [Concomitant]
  17. SINGULAIR [Concomitant]
  18. IMIREX [Concomitant]
  19. IRON [Concomitant]
  20. V D3 [Concomitant]
  21. SENNA [Concomitant]
  22. MAGNESIUM [Concomitant]
  23. MIRALAX [Concomitant]

REACTIONS (3)
  - Dysarthria [None]
  - Myoclonus [None]
  - Asthenia [None]
